FAERS Safety Report 6986131-0 (Version None)
Quarter: 2010Q3

REPORT INFORMATION
  Report Type: 
  Country: None (occurrence: None)
  Receive Date: 20100910
  Receipt Date: 20100826
  Transmission Date: 20110219
  Serious: Yes (Hospitalization)
  Sender: FDA-Public Use
  Company Number: 2010S1000753

PATIENT
  Age: 75 Year
  Sex: Female
  Weight: 56.5 kg

DRUGS (6)
  1. LIVALO [Suspect]
     Indication: HYPERCHOLESTEROLAEMIA
     Dosage: 1 MG;1X;PO
     Route: 048
     Dates: start: 20040514
  2. NORVASC [Concomitant]
  3. DIOVAN /01319601/ [Concomitant]
  4. AMARYL [Concomitant]
  5. MELBIN /00082702/ [Concomitant]
  6. OLMETEC [Concomitant]

REACTIONS (4)
  - DUODENAL ULCER HAEMORRHAGE [None]
  - FALL [None]
  - FEMUR FRACTURE [None]
  - JOINT ARTHROPLASTY [None]
